FAERS Safety Report 9418610 (Version 3)
Quarter: 2013Q4

REPORT INFORMATION
  Report Type: Spontaneous
  Country: DE (occurrence: DE)
  Receive Date: 20130725
  Receipt Date: 20131107
  Transmission Date: 20140711
  Serious: Yes (Other)
  Sender: FDA-Public Use
  Company Number: DE-AMGEN-DEUSP2013050875

PATIENT
  Age: 81 Year
  Sex: Female

DRUGS (3)
  1. PROLIA [Suspect]
     Indication: OSTEOPOROSIS
     Dosage: UNK UNK, Q6MO
     Route: 065
     Dates: start: 201102
  2. METEX                              /00113802/ [Concomitant]
     Indication: RHEUMATOID ARTHRITIS
  3. LEFLUNOMIDE [Concomitant]
     Indication: RHEUMATOID ARTHRITIS

REACTIONS (10)
  - Thoracic vertebral fracture [Unknown]
  - Facial bones fracture [Unknown]
  - Brain injury [Unknown]
  - Head injury [Unknown]
  - Gait disturbance [Unknown]
  - Fall [Unknown]
  - Necrosis [Not Recovered/Not Resolved]
  - Osteonecrosis of jaw [Unknown]
  - Pain in extremity [Not Recovered/Not Resolved]
  - Stomatitis [Not Recovered/Not Resolved]
